FAERS Safety Report 9355882 (Version 1)
Quarter: 2013Q2

REPORT INFORMATION
  Report Type: Spontaneous
  Country: US (occurrence: US)
  Receive Date: 20130619
  Receipt Date: 20130619
  Transmission Date: 20140414
  Serious: No
  Sender: FDA-Public Use
  Company Number: US-009507513-1306USA008560

PATIENT
  Sex: Female

DRUGS (3)
  1. NASONEX [Suspect]
     Indication: ASTHMA
     Dosage: 50 MICROGRAM, UNK
     Route: 055
     Dates: start: 201303
  2. SINGULAIR [Suspect]
     Dosage: 20 MG, UNK
     Route: 048
  3. NEXIUM [Concomitant]
     Dosage: UNK

REACTIONS (3)
  - Cough [Not Recovered/Not Resolved]
  - Increased upper airway secretion [Not Recovered/Not Resolved]
  - Dysgeusia [Not Recovered/Not Resolved]
